FAERS Safety Report 17408741 (Version 1)
Quarter: 2020Q1

REPORT INFORMATION
  Report Type: Spontaneous
  Country: AT (occurrence: AT)
  Receive Date: 20200212
  Receipt Date: 20200212
  Transmission Date: 20200409
  Serious: Yes (Other)
  Sender: FDA-Public Use
  Company Number: NVSC2020AT030989

PATIENT
  Age: 75 Year
  Sex: Male

DRUGS (1)
  1. STANDACILLIN 500 MG POWDER FOR INJECTION [Suspect]
     Active Substance: AMPICILLIN SODIUM
     Indication: PRODUCT USED FOR UNKNOWN INDICATION
     Route: 042
     Dates: start: 20191015, end: 20191015

REACTIONS (3)
  - Type I hypersensitivity [Recovered/Resolved]
  - Eyelid oedema [Recovered/Resolved]
  - Dysphagia [Recovered/Resolved]

NARRATIVE: CASE EVENT DATE: 20191015
